FAERS Safety Report 10219051 (Version 2)
Quarter: 2014Q2

REPORT INFORMATION
  Report Type: Spontaneous
  Country: JP (occurrence: JP)
  Receive Date: 20140605
  Receipt Date: 20140605
  Transmission Date: 20141212
  Serious: Yes (Other)
  Sender: FDA-Public Use
  Company Number: JP-ASTRAZENECA-2014SE32959

PATIENT
  Age: 83 Year
  Sex: Female

DRUGS (14)
  1. XYLOCAINE [Suspect]
     Route: 014
     Dates: start: 20130604
  2. XYLOCAINE [Suspect]
     Route: 014
     Dates: start: 20130611
  3. XYLOCAINE [Suspect]
     Route: 014
     Dates: start: 20130618
  4. XYLOCAINE [Suspect]
     Route: 014
     Dates: start: 20130723
  5. XYLOCAINE [Suspect]
     Route: 014
     Dates: start: 20140225
  6. PREDONINE [Suspect]
     Route: 065
  7. LYRICA [Suspect]
     Dosage: DOSE UNKNOWN
     Route: 065
  8. METHYCOBAL [Suspect]
     Dosage: DOSE UNKNOWN
     Route: 065
  9. MEVALOTIN [Suspect]
     Dosage: DOSE UNKNOWN
     Route: 065
  10. MAGNESIUM OXIDE [Suspect]
     Dosage: DOSE UNKNOWN
     Route: 065
  11. AMLODIN [Suspect]
     Dosage: DOSE UNKNOWN
     Route: 065
  12. CELECOX [Suspect]
     Dosage: DOSE UNKNOWN
     Route: 065
  13. EPADEL [Suspect]
     Dosage: DOSE UNKNOWN
     Route: 065
  14. TERNELIN [Suspect]
     Dosage: DOSE UNKNOWN
     Route: 065

REACTIONS (3)
  - Rash generalised [Recovering/Resolving]
  - Pruritus [Unknown]
  - Eosinophil count increased [Not Recovered/Not Resolved]
